FAERS Safety Report 18493296 (Version 1)
Quarter: 2020Q4

REPORT INFORMATION
  Report Type: Report from Study
  Country: US (occurrence: US)
  Receive Date: 20201111
  Receipt Date: 20201111
  Transmission Date: 20210114
  Serious: Yes (Hospitalization, Other)
  Sender: FDA-Public Use
  Company Number: US-SHIRE-US202031112

PATIENT
  Age: 4 Year
  Sex: Male

DRUGS (4)
  1. GATTEX [Suspect]
     Active Substance: TEDUGLUTIDE\WATER
     Indication: SHORT-BOWEL SYNDROME
     Dosage: 0.65 MILLIGRAM, 1X/DAY:QD
     Route: 058
     Dates: start: 20200901
  2. GATTEX [Suspect]
     Active Substance: TEDUGLUTIDE\WATER
     Indication: SHORT-BOWEL SYNDROME
     Dosage: 0.65 MILLIGRAM, 1X/DAY:QD
     Route: 058
     Dates: start: 20200901
  3. GATTEX [Suspect]
     Active Substance: TEDUGLUTIDE\WATER
     Indication: SHORT-BOWEL SYNDROME
     Dosage: 0.65 MILLIGRAM, 1X/DAY:QD
     Route: 058
     Dates: start: 20200901
  4. GATTEX [Suspect]
     Active Substance: TEDUGLUTIDE\WATER
     Indication: SHORT-BOWEL SYNDROME
     Dosage: 0.65 MILLIGRAM, 1X/DAY:QD
     Route: 058
     Dates: start: 20200901

REACTIONS (2)
  - Inappropriate schedule of product administration [Unknown]
  - Device related bacteraemia [Unknown]

NARRATIVE: CASE EVENT DATE: 20200922
